FAERS Safety Report 9268680 (Version 1)
Quarter: 2013Q2

REPORT INFORMATION
  Report Type: Spontaneous
  Country: US (occurrence: US)
  Receive Date: 20130502
  Receipt Date: 20130502
  Transmission Date: 20140414
  Serious: No
  Sender: FDA-Public Use
  Company Number: US-ALEXION-A201300219

PATIENT
  Sex: Male

DRUGS (2)
  1. SOLIRIS 300MG [Suspect]
     Indication: PAROXYSMAL NOCTURNAL HAEMOGLOBINURIA
     Dosage: UNK, UNK
     Route: 042
     Dates: start: 20070430
  2. SOLIRIS 300MG [Suspect]
     Dosage: 900 MG, 12 DAY
     Route: 042

REACTIONS (3)
  - Autoantibody positive [Unknown]
  - Malaise [Unknown]
  - Haemolysis [Unknown]
